FAERS Safety Report 4552772-3 (Version None)
Quarter: 2005Q1

REPORT INFORMATION
  Report Type: 
  Country: None (occurrence: None)
  Receive Date: 20050114
  Receipt Date: 20030616
  Transmission Date: 20050727
  Serious: Yes (Hospitalization)
  Sender: FDA-Public Use
  Company Number: US-ROCHE-340289

PATIENT
  Age: 57 Year
  Sex: Male

DRUGS (16)
  1. PEG-INTERFERON ALFA 2A (RO 25-8310) [Suspect]
     Indication: HEPATITIS C
     Route: 065
     Dates: start: 20030113
  2. PEG-INTERFERON ALFA 2A (RO 25-8310) [Suspect]
     Route: 065
     Dates: end: 20030615
  3. RIBAVIRIN [Suspect]
     Indication: HEPATITIS C
     Route: 048
     Dates: start: 20030113, end: 20030615
  4. BLINDED POLYENYLPHOSPHATIDYLCHOLINE [Suspect]
     Route: 048
  5. CELECOXIB [Concomitant]
     Indication: ARTHRITIS
     Route: 048
  6. GUAIFENESIN DM [Concomitant]
     Route: 048
  7. FLUNISOLIDE [Concomitant]
     Dosage: AS NEEDED.
     Route: 055
  8. GATIFLOXACIN [Concomitant]
     Indication: PNEUMONIA
     Route: 048
  9. HYDROXYZINE [Concomitant]
     Indication: ANXIETY
     Route: 048
  10. LEVOTHYROXINE SODIUM [Concomitant]
     Indication: HYPOTHYROIDISM
     Route: 048
  11. LORATADINE [Concomitant]
     Route: 048
  12. MORPHINE [Concomitant]
     Indication: PAIN
     Dosage: 3 TABLETS IN THE MORNING AND 4 IN THE EVENING.
     Route: 048
  13. MULTIVITAMIN NOS [Concomitant]
     Route: 048
  14. OMEPRAZOLE [Concomitant]
     Route: 048
  15. PHENYTOIN [Concomitant]
     Route: 048
  16. TRAZODONE HCL [Concomitant]
     Indication: SLEEP DISORDER
     Route: 048

REACTIONS (11)
  - ADENOCARCINOMA [None]
  - ADRENAL DISORDER [None]
  - GRAND MAL CONVULSION [None]
  - HAEMOPTYSIS [None]
  - LUNG NEOPLASM [None]
  - LYMPHADENOPATHY [None]
  - NON-SMALL CELL LUNG CANCER [None]
  - NON-SMALL CELL LUNG CANCER METASTATIC [None]
  - PLEURAL EFFUSION [None]
  - PNEUMONIA [None]
  - SUPERIOR VENA CAVAL OCCLUSION [None]
